FAERS Safety Report 25498875 (Version 3)
Quarter: 2025Q4

REPORT INFORMATION
  Report Type: Spontaneous
  Country: US (occurrence: None)
  Receive Date: 20250701
  Receipt Date: 20251229
  Transmission Date: 20260118
  Serious: No
  Sender: CHIESI
  Company Number: US-CHIESI-2025CHF03442

PATIENT
  Sex: Female
  Weight: 83.501 kg

DRUGS (2)
  1. FILSUVEZ [Suspect]
     Active Substance: BIRCH TRITERPENES
     Indication: Epidermolysis bullosa
     Dosage: UNK, PRN
     Route: 048
     Dates: start: 20240716
  2. FILSUVEZ [Suspect]
     Active Substance: BIRCH TRITERPENES
     Dosage: UNK, PRN
     Route: 048

REACTIONS (6)
  - Hyperkeratosis [Not Recovered/Not Resolved]
  - Wound [Not Recovered/Not Resolved]
  - Wound dehiscence [Not Recovered/Not Resolved]
  - Wound infection [Recovered/Resolved]
  - Drug ineffective [Not Recovered/Not Resolved]
  - Product complaint [Recovered/Resolved]
